FAERS Safety Report 12234500 (Version 1)
Quarter: 2016Q2

REPORT INFORMATION
  Report Type: Spontaneous
  Country: US (occurrence: None)
  Receive Date: 20160401
  Receipt Date: 20160401
  Transmission Date: 20160815
  Serious: Yes (Hospitalization, Other)
  Sender: FDA-Public Use
  Company Number: None

PATIENT
  Age: 34 Year
  Sex: Female
  Weight: 97 kg

DRUGS (1)
  1. NEOSTIGMINE METHYLSULFATE, 1MG/ML ECLAT PHARMACEUTICALS [Suspect]
     Active Substance: NEOSTIGMINE METHYLSULFATE
     Indication: NEUROMUSCULAR BLOCKADE REVERSAL
     Route: 040
     Dates: start: 20160330, end: 20160330

REACTIONS (1)
  - Neuromuscular block prolonged [None]

NARRATIVE: CASE EVENT DATE: 20160330
